FAERS Safety Report 16040569 (Version 9)
Quarter: 2022Q1

REPORT INFORMATION
  Report Type: Other
  Country: DE (occurrence: None)
  Receive Date: 20190306
  Receipt Date: 20220202
  Transmission Date: 20220423
  Serious: Yes (Hospitalization)
  Sender: FDA-Public Use
  Company Number: DE-ROCHE-2271638

PATIENT
  Age: 33 Year
  Sex: Female
  Weight: 55 kg

DRUGS (9)
  1. OCRELIZUMAB [Suspect]
     Active Substance: OCRELIZUMAB
     Indication: Relapsing multiple sclerosis
     Route: 042
     Dates: start: 20180926
  2. COMIRNATY [Concomitant]
     Active Substance: TOZINAMERAN
     Indication: COVID-19 immunisation
     Route: 030
     Dates: start: 20210901, end: 20210901
  3. COMIRNATY [Concomitant]
     Active Substance: TOZINAMERAN
     Route: 030
     Dates: start: 20210722, end: 20210722
  4. PREDNISOLONE [Concomitant]
     Active Substance: PREDNISOLONE
     Indication: Premedication
     Dosage: PREMEDICATION PRIOR TO ADMINISTRATION OF OCREVUS
     Route: 042
     Dates: start: 20180926
  5. PANTOZOL [Concomitant]
     Active Substance: PANTOPRAZOLE SODIUM
     Indication: Premedication
     Dosage: PREMEDICATION PRIOR TO ADMINISTRATION OF OCREVUS STARTING DOSE 1X EVERY 2 WEEK
     Route: 048
     Dates: start: 20180926
  6. PANTOZOL [Concomitant]
     Active Substance: PANTOPRAZOLE SODIUM
     Indication: Post herpetic neuralgia
     Route: 048
     Dates: start: 201902, end: 201902
  7. DIMETHINDENE MALEATE [Concomitant]
     Active Substance: DIMETHINDENE MALEATE
     Indication: Premedication
     Dosage: PREMEDICATION PRIOR TO ADMINISTRATION OF OCREVUS
     Route: 042
     Dates: start: 20180926
  8. IBUPROFEN [Concomitant]
     Active Substance: IBUPROFEN
     Indication: Headache
     Dosage: AS NEEDED
     Route: 048
  9. ACETAMINOPHEN [Concomitant]
     Active Substance: ACETAMINOPHEN
     Indication: Premedication
     Dosage: PREMEDICATION PRIOR TO ADMINISTRATION OF OCREVUS
     Route: 048
     Dates: start: 20180926

REACTIONS (1)
  - Groin pain [Recovering/Resolving]

NARRATIVE: CASE EVENT DATE: 20190119
